FAERS Safety Report 14020961 (Version 1)
Quarter: 2017Q3

REPORT INFORMATION
  Report Type: Spontaneous
  Country: US (occurrence: US)
  Receive Date: 20170928
  Receipt Date: 20170928
  Transmission Date: 20171128
  Serious: Yes (Other)
  Sender: FDA-Public Use
  Company Number: US-ROCHE-780026

PATIENT
  Age: 37 Year
  Sex: Male

DRUGS (7)
  1. RITUXIMAB. [Suspect]
     Active Substance: RITUXIMAB
     Dosage: FORM: INFUSION, SALVAGE CHEMOTHERAPY
     Route: 042
  2. RITUXIMAB. [Suspect]
     Active Substance: RITUXIMAB
     Dosage: POST TRANSPLANT INFUSION
     Route: 042
  3. ARA-C [Concomitant]
     Active Substance: CYTARABINE
     Indication: DIFFUSE LARGE B-CELL LYMPHOMA
     Dosage: SALVAGE CHEMOTHERAPY, RECEIVED TWO CYCLES
     Route: 065
  4. DEXAMETHASONE. [Concomitant]
     Active Substance: DEXAMETHASONE
     Indication: DIFFUSE LARGE B-CELL LYMPHOMA
     Dosage: SALVAGE CHEMOTHERAPY, RECEIVED TWO CYCLES
     Route: 065
  5. CISPLATIN. [Concomitant]
     Active Substance: CISPLATIN
     Indication: DIFFUSE LARGE B-CELL LYMPHOMA
     Dosage: SALVAGE CHEMOTHERAPY, RECEIVED TWO CYCLES
     Route: 065
  6. MELPHALAN. [Concomitant]
     Active Substance: MELPHALAN
     Route: 065
  7. RITUXIMAB. [Suspect]
     Active Substance: RITUXIMAB
     Indication: DIFFUSE LARGE B-CELL LYMPHOMA
     Dosage: EIGHT CYCLES
     Route: 042

REACTIONS (2)
  - Hypogammaglobulinaemia [Unknown]
  - Lymphopenia [Unknown]
